FAERS Safety Report 4598474-9 (Version None)
Quarter: 2005Q1

REPORT INFORMATION
  Report Type: 
  Country: None (occurrence: None)
  Receive Date: 20050204
  Receipt Date: 20031204
  Transmission Date: 20050727
  Serious: Yes (Other)
  Sender: FDA-Public Use
  Company Number: PHEH2003US11095

PATIENT
  Age: 25 Year
  Sex: Male

DRUGS (4)
  1. CLOZARIL [Suspect]
     Indication: AGGRESSION
     Dosage: 200 MG, BID, ORAL
     Route: 048
     Dates: start: 20031001, end: 20031117
  2. SEROQUEL [Concomitant]
  3. CELEXA [Concomitant]
  4. DEPAKOTE [Concomitant]

REACTIONS (1)
  - HYPERTENSION [None]
